FAERS Safety Report 12873901 (Version 2)
Quarter: 2017Q1

REPORT INFORMATION
  Report Type: Report from Study
  Country: JP (occurrence: JP)
  Receive Date: 20161021
  Receipt Date: 20170127
  Transmission Date: 20170428
  Serious: Yes (Other)
  Sender: FDA-Public Use
  Company Number: JP-UCBSA-2016029811

PATIENT
  Age: 72 Year
  Sex: Female
  Weight: 37 kg

DRUGS (20)
  1. E KEPPRA [Suspect]
     Active Substance: LEVETIRACETAM
     Indication: PARTIAL SEIZURES WITH SECONDARY GENERALISATION
  2. PHENOBAL [Concomitant]
     Active Substance: PHENOBARBITAL
     Indication: COMPLEX PARTIAL SEIZURES
     Dosage: 50 MG, ONCE DAILY (QD)
     Dates: start: 20160229, end: 20160229
  3. PHENOBAL [Concomitant]
     Active Substance: PHENOBARBITAL
     Dosage: 50 MG, 2X/DAY (BID)
     Route: 065
     Dates: start: 20160308, end: 20160308
  4. CERCINE [Concomitant]
     Active Substance: DIAZEPAM
     Dosage: 5 MG, ONCE DAILY (QD)
     Route: 065
     Dates: start: 20160311, end: 20160311
  5. LEVETIRACETAM. [Suspect]
     Active Substance: LEVETIRACETAM
     Indication: COMPLEX PARTIAL SEIZURES
     Dosage: 500 MG, 2X/DAY (BID)
     Route: 041
     Dates: start: 20160301, end: 20160304
  6. LEVETIRACETAM. [Suspect]
     Active Substance: LEVETIRACETAM
     Indication: PARTIAL SEIZURES WITH SECONDARY GENERALISATION
     Dosage: 500 MG, 2X/DAY (BID)
     Route: 041
     Dates: start: 20160307, end: 201603
  7. EBRANTIL [Concomitant]
     Active Substance: URAPIDIL
     Indication: PRODUCT USED FOR UNKNOWN INDICATION
     Dosage: 15 MG DAILY
     Route: 048
     Dates: end: 20160306
  8. PHENOBAL [Concomitant]
     Active Substance: PHENOBARBITAL
     Dosage: 50 MG, ONCE DAILY (QD)
     Route: 065
     Dates: start: 20160311, end: 20160311
  9. CEFTRIAXONE SODIUM. [Concomitant]
     Active Substance: CEFTRIAXONE SODIUM
     Indication: CYSTITIS
     Dosage: 1 G, 2X/DAY (BID)
     Route: 042
     Dates: start: 20160307, end: 20160310
  10. E KEPPRA [Suspect]
     Active Substance: LEVETIRACETAM
     Indication: COMPLEX PARTIAL SEIZURES
     Dosage: 500 MG, 2X/DAY (BID)
     Route: 048
     Dates: start: 20160305, end: 201603
  11. ZONISAMIDE. [Concomitant]
     Active Substance: ZONISAMIDE
     Indication: COMPLEX PARTIAL SEIZURES
     Dosage: 200 MG DAILY
     Route: 048
     Dates: end: 20160229
  12. CERCINE [Concomitant]
     Active Substance: DIAZEPAM
     Dosage: 5 MG, ONCE DAILY (QD)
     Route: 065
     Dates: start: 20160309, end: 20160309
  13. CERCINE [Concomitant]
     Active Substance: DIAZEPAM
     Dosage: 5 MG, 3X/DAY (TID)
     Route: 065
     Dates: start: 20160310, end: 20160310
  14. NITRAZEPAM [Concomitant]
     Active Substance: NITRAZEPAM
     Indication: PRODUCT USED FOR UNKNOWN INDICATION
     Dosage: 5 MG DAILY
     Route: 048
     Dates: end: 20160306
  15. ALEVIATIN [Concomitant]
     Active Substance: PHENYTOIN SODIUM
     Indication: COMPLEX PARTIAL SEIZURES
     Dosage: 450 MG, ONCE DAILY (QD)
     Dates: start: 20160307, end: 20160307
  16. LONASEN [Concomitant]
     Active Substance: BLONANSERIN
     Indication: PRODUCT USED FOR UNKNOWN INDICATION
     Dosage: 16 MG DAILY
     Route: 048
     Dates: end: 20160306
  17. AMLODIPINE BESILATE [Concomitant]
     Active Substance: AMLODIPINE BESYLATE
     Indication: PRODUCT USED FOR UNKNOWN INDICATION
     Dosage: 5 MG DAILY
     Route: 048
     Dates: end: 20160306
  18. LEVETIRACETAM. [Suspect]
     Active Substance: LEVETIRACETAM
     Dosage: 1500 MG DAILY
     Route: 041
     Dates: start: 20160310, end: 20160311
  19. LEVETIRACETAM. [Suspect]
     Active Substance: LEVETIRACETAM
     Dosage: 2000 MG DAILY
     Route: 041
     Dates: start: 20160312
  20. CERCINE [Concomitant]
     Active Substance: DIAZEPAM
     Indication: COMPLEX PARTIAL SEIZURES
     Dosage: 5 MG, ONCE DAILY (QD)
     Route: 065
     Dates: start: 20160307, end: 20160307

REACTIONS (3)
  - Intracranial pressure increased [Recovered/Resolved]
  - Monoplegia [Recovered/Resolved]
  - Cystitis [Recovered/Resolved]

NARRATIVE: CASE EVENT DATE: 20160307
